FAERS Safety Report 7994277-3 (Version None)
Quarter: 2011Q4

REPORT INFORMATION
  Report Type: 
  Country: None (occurrence: None)
  Receive Date: 20111220
  Receipt Date: 20111212
  Transmission Date: 20120403
  Serious: Yes (Other)
  Sender: FDA-Public Use
  Company Number: FR-JNJFOC-20111206383

PATIENT
  Age: 32 Year
  Sex: Male
  Weight: 126 kg

DRUGS (11)
  1. PANTOPRAZOLE SODIUM [Concomitant]
  2. ACETAMINOPHEN [Concomitant]
  3. ACETAMINOPHEN [Concomitant]
  4. OXYCODONE HCL [Concomitant]
  5. ENOXAPARIN [Concomitant]
  6. CEFAMANDOLE SODIUM [Concomitant]
  7. TRAMADOL HCL [Concomitant]
  8. DROPERIDOL [Concomitant]
  9. DURAGESIC-100 [Concomitant]
  10. KETOPROFEN [Concomitant]
  11. XARELTO [Suspect]
     Indication: HIP ARTHROPLASTY
     Route: 048
     Dates: start: 20110126

REACTIONS (2)
  - VENOUS THROMBOSIS [None]
  - THROMBOPHLEBITIS [None]
